FAERS Safety Report 4884380-9 (Version None)
Quarter: 2006Q1

REPORT INFORMATION
  Report Type: 
  Country: None (occurrence: None)
  Receive Date: 20060117
  Receipt Date: 20060117
  Transmission Date: 20060701
  Serious: Yes (Hospitalization)
  Sender: FDA-Public Use
  Company Number: None

PATIENT
  Age: 45 Year
  Sex: Female

DRUGS (11)
  1. RITUXAN [Suspect]
     Indication: NON-HODGKIN'S LYMPHOMA
     Dosage: 833 MG X 1 IV INFUSION
     Route: 042
     Dates: start: 20040214
  2. DECADRON [Concomitant]
  3. BENADRYL [Concomitant]
  4. CYTOXAN [Concomitant]
  5. ONCOVIN [Concomitant]
  6. BUMEX [Concomitant]
  7. ZOFRAN [Concomitant]
  8. PROTONIX [Concomitant]
  9. DOXORUBICIN [Concomitant]
  10. CACL2 [Concomitant]
  11. CHLOROTHIAZIDE [Concomitant]

REACTIONS (5)
  - BLOOD CREATININE INCREASED [None]
  - DYSPNOEA [None]
  - METABOLIC ACIDOSIS [None]
  - URINE OUTPUT DECREASED [None]
  - WHEEZING [None]
